FAERS Safety Report 8369770-4 (Version None)
Quarter: 2012Q2

REPORT INFORMATION
  Report Type: 
  Country: None (occurrence: None)
  Receive Date: 20120518
  Receipt Date: 20120515
  Transmission Date: 20120825
  Serious: Yes (Death)
  Sender: FDA-Public Use
  Company Number: FR-PFIZER INC-2012075376

PATIENT
  Age: 61 Year
  Sex: Male

DRUGS (26)
  1. AMLODIPINE BESYLATE [Suspect]
     Dosage: 5 MG, 1X/DAY
     Dates: start: 20081230, end: 20110729
  2. HALDOL [Suspect]
     Dosage: 2 MG/ML, ORAL SOLUTION IN DROPS, UNSPECIFIED DOSAGE
     Route: 048
     Dates: start: 20041027, end: 20090716
  3. ESIDRIX [Suspect]
     Dosage: 12.5 MG, 1X/DAY
     Route: 048
     Dates: start: 20090113, end: 20110729
  4. TRIMEPRAZINE TARTRATE [Suspect]
     Dosage: 4% ORAL SOLUTION IN DROPS, 100 DROPS PER DAY
     Route: 048
     Dates: start: 20081220, end: 20110729
  5. POLYETHYLENE GLYCOL [Concomitant]
     Dosage: 6 DF DAILY
     Dates: start: 20080101
  6. POLYETHYLENE GLYCOL [Concomitant]
     Dosage: UNK
     Dates: start: 20060101
  7. RISPERIDONE [Concomitant]
     Dosage: 0.1 %, FROM 2MG TO 8MG/DAY
     Dates: start: 20100618, end: 20100729
  8. X-PREP [Concomitant]
     Dosage: AS NEEDED
     Dates: start: 20090101
  9. X-PREP [Concomitant]
     Dosage: UNK
     Dates: start: 20060101
  10. SULFARLEM [Concomitant]
     Dosage: UNK
  11. RISPERIDONE [Concomitant]
     Dosage: 0.1 %, FROM 2MG TO 8MG/DAY
     Dates: start: 20101227, end: 20110120
  12. RISPERDAL CONSTA [Suspect]
     Indication: SCHIZOPHRENIA, PARANOID TYPE
     Dosage: 50 MG/2 ML
     Dates: start: 20100708, end: 20110722
  13. VASTAREL [Suspect]
     Dosage: 35 MG, 2X/DAY
     Route: 048
     Dates: start: 20110527, end: 20110729
  14. EDUCTYL [Concomitant]
     Dosage: 2 SUPPOSITORY DAILY
     Dates: start: 20090101
  15. IMOVANE [Suspect]
     Dosage: 7.5 MG, 2X/DAY
     Route: 048
     Dates: start: 20041027, end: 20110729
  16. ATARAX [Suspect]
     Dosage: 100 MG, 1X/DAY
     Route: 048
     Dates: start: 20101220, end: 20110729
  17. ATACAND [Suspect]
     Dosage: 16 MG, 1X/DAY
     Route: 048
     Dates: start: 20090113, end: 20110729
  18. NORMACOL [Concomitant]
     Dosage: 1 DF, ALTERNATE DAY
     Dates: start: 20090101
  19. LEPTICUR [Concomitant]
     Dosage: UNK
     Dates: start: 20080101
  20. CELESTAMINE TAB [Concomitant]
     Dosage: 3 DF DAILY
     Dates: start: 20100101
  21. LEVOTHYROXINE SODIUM [Concomitant]
     Dosage: UNK
     Dates: start: 20040101
  22. ATACAND [Suspect]
     Dosage: 8 MG, 1X/DAY
     Route: 048
     Dates: start: 20090102, end: 20090112
  23. LOXAPINE HCL [Suspect]
     Dosage: 1.5 TABLETS OF 100 MG 1 TIME PER DAY
     Route: 048
     Dates: start: 20091119, end: 20110729
  24. SERC [Suspect]
     Dosage: 8 MG, 2X/DAY
     Route: 048
     Dates: start: 20110527, end: 20110729
  25. LANSOYL [Concomitant]
     Dosage: 3 DF DAILY
     Dates: start: 20090101
  26. FLUPHENAZINE DECANOATE [Concomitant]
     Dosage: UNK
     Dates: start: 20060101

REACTIONS (2)
  - CARDIAC ARREST [None]
  - ELECTROCARDIOGRAM QT PROLONGED [None]
